FAERS Safety Report 16223246 (Version 1)
Quarter: 2019Q2

REPORT INFORMATION
  Report Type: Spontaneous
  Country: US (occurrence: US)
  Receive Date: 20190422
  Receipt Date: 20190422
  Transmission Date: 20190711
  Serious: No
  Sender: FDA-Public Use
  Company Number: US-PFIZER INC-2019166513

PATIENT
  Age: 83 Year
  Sex: Male
  Weight: 81 kg

DRUGS (1)
  1. GABAPENTIN. [Suspect]
     Active Substance: GABAPENTIN
     Indication: LIMB DISCOMFORT
     Dosage: UNK, DAILY (UP TO 5 AND 6 CAPSULES)
     Dates: end: 2019

REACTIONS (3)
  - Fatigue [Unknown]
  - Somnolence [Unknown]
  - Drug ineffective for unapproved indication [Unknown]

NARRATIVE: CASE EVENT DATE: 2018
